FAERS Safety Report 10216401 (Version 4)
Quarter: 2014Q3

REPORT INFORMATION
  Report Type: Report from Study
  Country: CA (occurrence: CA)
  Receive Date: 20140604
  Receipt Date: 20140718
  Transmission Date: 20150326
  Serious: Yes (Hospitalization, Other)
  Sender: FDA-Public Use
  Company Number: PHHY2009CA22123

PATIENT
  Age: 71 Year
  Sex: Male

DRUGS (1)
  1. SANDOSTATIN LAR DEPOT [Suspect]
     Active Substance: OCTREOTIDE ACETATE
     Indication: PANCREATITIS
     Dosage: 20 MG, ONCE A MONTH
     Route: 030
     Dates: start: 20081217

REACTIONS (13)
  - Coronary artery occlusion [Unknown]
  - Somnolence [Unknown]
  - Muscle rigidity [Unknown]
  - Arteriosclerosis [Unknown]
  - Troponin increased [Unknown]
  - Myocardial infarction [Unknown]
  - Muscle disorder [Unknown]
  - Muscle spasms [Recovering/Resolving]
  - Back pain [Recovering/Resolving]
  - Blood pressure increased [Unknown]
  - Chest pain [Unknown]
  - Abdominal pain upper [Unknown]
  - Heart rate decreased [Unknown]

NARRATIVE: CASE EVENT DATE: 20140527
